FAERS Safety Report 7499034-2 (Version None)
Quarter: 2011Q2

REPORT INFORMATION
  Report Type: 
  Country: None (occurrence: None)
  Receive Date: 20110524
  Receipt Date: 20110513
  Transmission Date: 20111010
  Serious: Yes (Death)
  Sender: FDA-Public Use
  Company Number: US-JNJFOC-20110506998

PATIENT
  Sex: Male
  Weight: 6.8 kg

DRUGS (3)
  1. CONCENTRATED TYLENOL INFANT DROPS [Suspect]
     Indication: IRRITABILITY
     Route: 048
     Dates: start: 20100414, end: 20100414
  2. CONCENTRATED TYLENOL INFANT DROPS [Suspect]
     Indication: PYREXIA
     Route: 048
     Dates: start: 20100414, end: 20100414
  3. CONCENTRATED TYLENOL INFANT DROPS [Suspect]
     Indication: DISCOMFORT
     Route: 048
     Dates: start: 20100414, end: 20100414

REACTIONS (3)
  - SEPSIS [None]
  - GASTROENTERITIS [None]
  - PRODUCT QUALITY ISSUE [None]
